FAERS Safety Report 12809494 (Version 1)
Quarter: 2016Q4

REPORT INFORMATION
  Report Type: Spontaneous
  Country: FR (occurrence: FR)
  Receive Date: 20161005
  Receipt Date: 20161005
  Transmission Date: 20170207
  Serious: Yes (Hospitalization, Other)
  Sender: FDA-Public Use
  Company Number: FR-BAXTER-2016BAX049465

PATIENT
  Age: 69 Year
  Sex: Male

DRUGS (12)
  1. HOLOXAN 2000 MG, POUDRE POUR USAGE PARENT?RAL [Suspect]
     Active Substance: IFOSFAMIDE
     Indication: UNDIFFERENTIATED SARCOMA
     Route: 042
     Dates: start: 201211
  2. HOLOXAN 2000 MG, POUDRE POUR USAGE PARENT?RAL [Suspect]
     Active Substance: IFOSFAMIDE
     Route: 042
     Dates: start: 201409, end: 201510
  3. ADRIBLASTINE [Suspect]
     Active Substance: DOXORUBICIN
     Indication: UNDIFFERENTIATED SARCOMA
     Route: 042
     Dates: start: 201211
  4. CALCIDIA [Concomitant]
     Active Substance: CALCIUM POLYCARBOPHIL
     Indication: DRUG THERAPY
     Route: 048
  5. LEXOMIL [Concomitant]
     Active Substance: BROMAZEPAM
     Indication: DRUG THERAPY
     Route: 048
  6. SODIUM BICARBONATE. [Concomitant]
     Active Substance: SODIUM BICARBONATE
     Indication: DRUG THERAPY
     Route: 048
     Dates: end: 201608
  7. YONDELIS [Suspect]
     Active Substance: TRABECTEDIN
     Indication: UNDIFFERENTIATED SARCOMA
     Route: 042
     Dates: start: 201510
  8. YONDELIS [Suspect]
     Active Substance: TRABECTEDIN
     Route: 042
     Dates: start: 201601, end: 201606
  9. PANTOPRAZOLE [Concomitant]
     Active Substance: PANTOPRAZOLE SODIUM
     Indication: DRUG THERAPY
     Route: 048
  10. ADRIBLASTINE [Suspect]
     Active Substance: DOXORUBICIN
     Route: 042
     Dates: start: 201409, end: 201510
  11. PHOSPHORUS BIOCINE [Suspect]
     Active Substance: PHOSPHORUS
     Indication: CHEMOTHERAPY
     Route: 065
     Dates: start: 201211
  12. ADENURIC [Concomitant]
     Active Substance: FEBUXOSTAT
     Indication: DRUG THERAPY
     Dosage: DOSE: HALF TABLET
     Route: 048

REACTIONS (6)
  - Kidney fibrosis [Unknown]
  - Renal impairment [Not Recovered/Not Resolved]
  - Acute kidney injury [Not Recovered/Not Resolved]
  - Chronic kidney disease [Not Recovered/Not Resolved]
  - Anaemia [Unknown]
  - Renal tubular disorder [Unknown]

NARRATIVE: CASE EVENT DATE: 201409
